FAERS Safety Report 12803274 (Version 1)
Quarter: 2016Q4

REPORT INFORMATION
  Report Type: Spontaneous
  Country: CH (occurrence: MX)
  Receive Date: 20161003
  Receipt Date: 20161003
  Transmission Date: 20170207
  Serious: Yes (Other)
  Sender: FDA-Public Use
  Company Number: CH-LPDUSPRD-20160847

PATIENT
  Age: 49 Year
  Sex: Female

DRUGS (1)
  1. FERINJECT [Suspect]
     Active Substance: FERRIC CARBOXYMALTOSE
     Dosage: DOSE UNKNOWN
     Route: 065

REACTIONS (4)
  - Chest pain [Unknown]
  - Pruritus [Unknown]
  - Rash generalised [Unknown]
  - Dyspnoea [Unknown]
